FAERS Safety Report 20548445 (Version 1)
Quarter: 2022Q1

REPORT INFORMATION
  Report Type: Spontaneous
  Country: US (occurrence: US)
  Receive Date: 20220303
  Receipt Date: 20220303
  Transmission Date: 20220424
  Serious: No
  Sender: FDA-Public Use
  Company Number: US-ALLERGAN-2109159US

PATIENT
  Sex: Female

DRUGS (4)
  1. RESTASIS [Suspect]
     Active Substance: CYCLOSPORINE
     Indication: Dry eye
     Dosage: 2 GTT, BID
     Route: 047
     Dates: start: 202012, end: 202102
  2. REFRESH PLUS [Concomitant]
     Active Substance: CARBOXYMETHYLCELLULOSE SODIUM
     Indication: Dry eye
     Dosage: 4 GTT, TID
     Route: 047
     Dates: start: 202010
  3. FISH OIL [Concomitant]
     Active Substance: FISH OIL
  4. Vision Live Max [Concomitant]
     Indication: Dry eye
     Dosage: UNK
     Dates: start: 202010

REACTIONS (1)
  - Drug ineffective [Unknown]
